FAERS Safety Report 10526726 (Version 2)
Quarter: 2014Q4

REPORT INFORMATION
  Report Type: Spontaneous
  Country: US (occurrence: US)
  Receive Date: 20141020
  Receipt Date: 20141205
  Transmission Date: 20150528
  Serious: Yes (Hospitalization)
  Sender: FDA-Public Use
  Company Number: US-BIOGENIDEC-2014BI106340

PATIENT
  Age: 60 Year
  Sex: Female
  Weight: 77 kg

DRUGS (14)
  1. VITAMIN B12 [Concomitant]
     Active Substance: CYANOCOBALAMIN
  2. TECFIDERA [Suspect]
     Active Substance: DIMETHYL FUMARATE
     Indication: MULTIPLE SCLEROSIS
     Route: 048
  3. ASPIRIN. [Concomitant]
     Active Substance: ASPIRIN
  4. SODIUM [Concomitant]
     Active Substance: SODIUM
  5. PHILIPS COLON HEALTH [Concomitant]
  6. TIZANIDINE HCL [Concomitant]
     Active Substance: TIZANIDINE HYDROCHLORIDE
  7. CLONIDINE HCL ER [Concomitant]
     Active Substance: CLONIDINE HYDROCHLORIDE
  8. VITAMIN B-1 [Concomitant]
  9. COMPLETE SENIOR [Concomitant]
  10. POTASSIUM CHLORIDE. [Concomitant]
     Active Substance: POTASSIUM CHLORIDE
  11. SIMVASTATIN. [Concomitant]
     Active Substance: SIMVASTATIN
  12. GABAPENTIN. [Concomitant]
     Active Substance: GABAPENTIN
  13. PANTOPRAZOLE [Concomitant]
     Active Substance: PANTOPRAZOLE SODIUM
  14. AMLODIPINE BESYLATE. [Concomitant]
     Active Substance: AMLODIPINE BESYLATE

REACTIONS (4)
  - Hernia [Unknown]
  - Gastritis [Unknown]
  - Ulcer [Unknown]
  - Gastrooesophageal reflux disease [Unknown]

NARRATIVE: CASE EVENT DATE: 20140929
